FAERS Safety Report 6753106-6 (Version None)
Quarter: 2010Q2

REPORT INFORMATION
  Report Type: 
  Country: None (occurrence: None)
  Receive Date: 20100603
  Receipt Date: 20100525
  Transmission Date: 20101027
  Serious: Yes (Hospitalization)
  Sender: FDA-Public Use
  Company Number: PHHY2010JP32701

PATIENT
  Age: 59 Year
  Sex: Female

DRUGS (1)
  1. TEGRETOL [Suspect]
     Dosage: 19.2 G
     Route: 048

REACTIONS (8)
  - ALTERED STATE OF CONSCIOUSNESS [None]
  - BRADYCARDIA [None]
  - CARDIOTOXICITY [None]
  - COMA [None]
  - DRUG LEVEL INCREASED [None]
  - HYPOTENSION [None]
  - OVERDOSE [None]
  - SHOCK [None]
